FAERS Safety Report 8791649 (Version 1)
Quarter: 2012Q4

REPORT INFORMATION
  Report Type: 
  Country: US (occurrence: US)
  Receive Date: 20120918
  Receipt Date: 20120918
  Transmission Date: 20130627
  Serious: Yes (Hospitalization, Other)
  Sender: FDA-Public Use
  Company Number: US-JNJFOC-20120905104

PATIENT
  Age: 96 None
  Sex: Female
  Weight: 46.27 kg

DRUGS (17)
  1. LEVAQUIN [Suspect]
     Indication: ENDOCARDITIS
     Route: 065
     Dates: start: 20111018, end: 201207
  2. LEVAQUIN [Suspect]
     Indication: INFECTION
     Route: 065
     Dates: start: 20111018, end: 201207
  3. VANCOMYCIN [Suspect]
     Indication: ENDOCARDITIS
     Route: 042
     Dates: start: 20110829, end: 201110
  4. VANCOMYCIN [Suspect]
     Indication: INFECTION
     Route: 042
     Dates: start: 20110829, end: 201110
  5. ZYVOX [Suspect]
     Indication: ENTEROCOCCAL BACTERAEMIA
     Route: 048
     Dates: start: 20120711, end: 20120803
  6. INSULIN [Concomitant]
     Route: 065
  7. CALCIUM AND VITAMIN D [Concomitant]
     Route: 065
  8. FOLIC ACID [Concomitant]
     Route: 065
  9. LASIX [Concomitant]
     Route: 065
  10. METOPROLOL [Concomitant]
     Route: 065
  11. POTASSIUM [Concomitant]
     Route: 065
  12. VALSARTAN [Concomitant]
     Route: 065
  13. COQ10 [Concomitant]
     Route: 065
  14. HUMAN INSULIN [Concomitant]
     Route: 065
  15. LIDODERM [Concomitant]
     Route: 065
  16. MULTIVITAMINS [Concomitant]
     Route: 065
  17. ASPIRIN [Concomitant]
     Route: 065

REACTIONS (2)
  - Platelet count decreased [Recovering/Resolving]
  - Enterococcal bacteraemia [Unknown]
